FAERS Safety Report 8583635 (Version 3)
Quarter: 2012Q4

REPORT INFORMATION
  Report Type: 
  Country: JP (occurrence: JP)
  Receive Date: 20120529
  Receipt Date: 20120906
  Transmission Date: 20130627
  Serious: Yes (Life-Threatening, Hospitalization, Other)
  Sender: FDA-Public Use
  Company Number: JP-PFIZER INC-2012029443

PATIENT
  Age: 65 Year
  Sex: Female
  Weight: 57 kg

DRUGS (11)
  1. VFEND [Suspect]
     Indication: BRONCHOPULMONARY ASPERGILLOSIS
     Dosage: 200 mg, 2x/day
     Route: 048
     Dates: start: 20111222
  2. LIPITOR [Interacting]
     Dosage: 10 mg, 1x/day
     Route: 048
     Dates: start: 20111019, end: 20120215
  3. METGLUCO [Concomitant]
     Dosage: 250 mg, 3x/day
     Route: 048
     Dates: start: 20111110, end: 20120216
  4. BASEN [Concomitant]
     Dosage: 0.3 mg, 3x/day
     Route: 048
     Dates: start: 20111110, end: 20120523
  5. PREDONINE [Concomitant]
     Dosage: 17.5 mg, 2x/day
     Route: 048
     Dates: start: 20111022
  6. BAKTAR [Concomitant]
     Dosage: 1 DF, 1x/day
     Route: 048
     Dates: start: 20111019
  7. TAKEPRON [Concomitant]
     Dosage: 15 mg, 1x/day
     Route: 048
     Dates: start: 20111027
  8. BLOPRESS [Concomitant]
     Dosage: 4 mg, 1x/day
     Dates: start: 20111115, end: 20120215
  9. BONALEN(ALENDRONATE SODIUM) [Concomitant]
     Dosage: 35 mg, weekly
     Dates: start: 20111028, end: 20120522
  10. NEORAL [Concomitant]
     Dosage: 75 mg, 2x/day
     Dates: start: 20111108, end: 20120110
  11. FUNGIZONE [Concomitant]
     Dosage: 2 mg, 2x/day
     Dates: start: 20111027, end: 20120603

REACTIONS (4)
  - Bronchopulmonary aspergillosis [Recovered/Resolved]
  - Drug interaction [Recovered/Resolved]
  - Hypertriglyceridaemia [Recovered/Resolved]
  - Anaemia macrocytic [Recovered/Resolved]
